FAERS Safety Report 21910233 (Version 1)
Quarter: 2023Q1

REPORT INFORMATION
  Report Type: Spontaneous
  Country: US (occurrence: US)
  Receive Date: 20230125
  Receipt Date: 20230125
  Transmission Date: 20230417
  Serious: No
  Sender: FDA-Public Use
  Company Number: US-ALLERGAN-2204355US

PATIENT
  Age: 48 Year
  Sex: Female
  Weight: 74 kg

DRUGS (16)
  1. BOTOX [Suspect]
     Active Substance: ONABOTULINUMTOXINA
     Indication: Bladder disorder
     Dosage: UNK UNK, SINGLE
  2. BOTOX [Suspect]
     Active Substance: ONABOTULINUMTOXINA
     Indication: Urinary incontinence
  3. TERIFLUNOMIDE [Suspect]
     Active Substance: TERIFLUNOMIDE
     Indication: Multiple sclerosis
     Dosage: 14 MG, QD
     Route: 048
     Dates: start: 20170614
  4. ESCITALOPRAM [Concomitant]
     Active Substance: ESCITALOPRAM OXALATE
     Indication: Depression
  5. AMANTADINE [Concomitant]
     Active Substance: AMANTADINE
  6. TRAZODONE [Concomitant]
     Active Substance: TRAZODONE HYDROCHLORIDE
     Indication: Sleep disorder
  7. ERGOCALCIFEROL [Concomitant]
     Active Substance: ERGOCALCIFEROL
  8. VARENICLINE TARTRATE [Concomitant]
     Active Substance: VARENICLINE TARTRATE
  9. PRAMIPEXOLE [Concomitant]
     Active Substance: PRAMIPEXOLE
  10. ASPIRIN [Concomitant]
     Active Substance: ASPIRIN
  11. VITAMIN D3 [Concomitant]
     Active Substance: CHOLECALCIFEROL
  12. CALCIUM 600+D [CALCIUM CARBONATE;COLECALCIFEROL] [Concomitant]
  13. UBIDECARENONE [Concomitant]
     Active Substance: UBIDECARENONE
  14. VITAMINS [Concomitant]
     Active Substance: VITAMINS
  15. SERTRALINE HYDROCHLORIDE [Concomitant]
     Active Substance: SERTRALINE HYDROCHLORIDE
  16. D-MANNOSE [Concomitant]

REACTIONS (17)
  - Bladder disorder [Unknown]
  - Weight increased [Unknown]
  - Depressed mood [Recovering/Resolving]
  - Depression [Recovering/Resolving]
  - Peripheral swelling [Unknown]
  - Limb injury [Unknown]
  - Foot fracture [Unknown]
  - Pain in extremity [Unknown]
  - Impaired healing [Unknown]
  - Intervertebral disc disorder [Unknown]
  - Cystitis [Unknown]
  - Foot operation [Unknown]
  - Alopecia [Not Recovered/Not Resolved]
  - Urinary incontinence [Recovering/Resolving]
  - Drug ineffective [Unknown]
  - Back pain [Unknown]
  - Urinary tract infection [Recovered/Resolved]

NARRATIVE: CASE EVENT DATE: 20170614
